FAERS Safety Report 9265070 (Version 1)
Quarter: 2013Q2

REPORT INFORMATION
  Report Type: Report from Study
  Country: BE (occurrence: BE)
  Receive Date: 20130501
  Receipt Date: 20130501
  Transmission Date: 20140414
  Serious: Yes (Hospitalization)
  Sender: FDA-Public Use
  Company Number: BE-ROCHE-1103428

PATIENT
  Age: 51 Year
  Sex: Female
  Weight: 80 kg

DRUGS (9)
  1. TOCILIZUMAB [Suspect]
     Indication: RHEUMATOID ARTHRITIS
     Dosage: LAST DOSE OF PRIOR TO SAE: 23/JUL/2012
     Route: 042
     Dates: start: 20120723
  2. METHOTREXATE [Concomitant]
     Indication: RHEUMATOID ARTHRITIS
     Route: 048
     Dates: start: 20120522, end: 20121126
  3. METHOTREXATE [Concomitant]
     Route: 048
     Dates: start: 20121127
  4. NAPROXENE [Concomitant]
     Indication: RHEUMATOID ARTHRITIS
     Route: 048
     Dates: start: 20120522
  5. PREDNISOLONE [Concomitant]
     Indication: RHEUMATOID ARTHRITIS
     Route: 048
     Dates: start: 20120417, end: 20121126
  6. PREDNISOLONE [Concomitant]
     Route: 048
     Dates: start: 20121126
  7. FOLIC ACID [Concomitant]
     Indication: PROPHYLAXIS
     Route: 048
     Dates: start: 20111125
  8. PANTOMED (BELGIUM) [Concomitant]
     Indication: PROPHYLAXIS
     Route: 048
     Dates: start: 20120522
  9. D-CURE [Concomitant]
     Indication: PROPHYLAXIS
     Dosage: 1 CAPSULE
     Route: 048
     Dates: start: 201204

REACTIONS (1)
  - Respiratory distress [Recovered/Resolved]
